FAERS Safety Report 4383224-1 (Version None)
Quarter: 2004Q2

REPORT INFORMATION
  Report Type: 
  Country: None (occurrence: None)
  Receive Date: 20040618
  Receipt Date: 20040602
  Transmission Date: 20050107
  Serious: Yes (Hospitalization, Disabling, Other)
  Sender: FDA-Public Use
  Company Number: USA040669102

PATIENT
  Age: 55 Year
  Sex: Female
  Weight: 89 kg

DRUGS (3)
  1. HUMULIN 70/30 [Suspect]
     Indication: DIABETES MELLITUS
     Dosage: 40 U/1 DAY
     Dates: start: 19940101
  2. LOPRESSOR [Concomitant]
  3. PREDNISONE [Concomitant]

REACTIONS (23)
  - ABDOMINAL MASS [None]
  - ANGINA PECTORIS [None]
  - ASTHMA [None]
  - BLOOD GLUCOSE DECREASED [None]
  - BLOOD GLUCOSE INCREASED [None]
  - BLOOD PRESSURE DECREASED [None]
  - BRONCHITIS [None]
  - CARDIAC FAILURE CONGESTIVE [None]
  - CATARACT [None]
  - CORONARY ARTERY OCCLUSION [None]
  - DYSKINESIA [None]
  - EYE HAEMORRHAGE [None]
  - EYE OPERATION COMPLICATION [None]
  - FLUID RETENTION [None]
  - FOOT FRACTURE [None]
  - FOREIGN BODY TRAUMA [None]
  - HYPOAESTHESIA [None]
  - LOSS OF CONSCIOUSNESS [None]
  - MYOCARDIAL INFARCTION [None]
  - SCAR [None]
  - STRESS SYMPTOMS [None]
  - SWELLING [None]
  - TREMOR [None]
